FAERS Safety Report 12648871 (Version 4)
Quarter: 2017Q2

REPORT INFORMATION
  Report Type: Spontaneous
  Country: US (occurrence: US)
  Receive Date: 20160812
  Receipt Date: 20170623
  Transmission Date: 20170830
  Serious: No
  Sender: FDA-Public Use
  Company Number: US-PFIZER INC-2016384577

PATIENT
  Age: 46 Year
  Sex: Female
  Weight: 85 kg

DRUGS (20)
  1. LIDOCAINE HCL [Suspect]
     Active Substance: LIDOCAINE HYDROCHLORIDE
     Indication: SACROILIITIS
     Dosage: 1 %, UNK
     Route: 014
     Dates: start: 20150824
  2. LIDOCAINE HCL [Suspect]
     Active Substance: LIDOCAINE HYDROCHLORIDE
     Dosage: UNK
     Route: 014
     Dates: start: 20160419
  3. LIDOCAINE HCL [Suspect]
     Active Substance: LIDOCAINE HYDROCHLORIDE
     Dosage: UNK
     Route: 014
     Dates: start: 20160627
  4. LIDOCAINE HCL [Suspect]
     Active Substance: LIDOCAINE HYDROCHLORIDE
     Dosage: UNK
     Route: 014
     Dates: start: 20160808
  5. LIDOCAINE HCL [Suspect]
     Active Substance: LIDOCAINE HYDROCHLORIDE
     Dosage: UNK
     Route: 014
     Dates: start: 20160223
  6. PREMARIN [Concomitant]
     Active Substance: ESTROGENS, CONJUGATED
     Dosage: UNK
  7. DEXTROSE. [Suspect]
     Active Substance: DEXTROSE
     Dosage: UNK
     Route: 014
     Dates: start: 20150924
  8. DEXTROSE. [Suspect]
     Active Substance: DEXTROSE
     Dosage: UNK
     Route: 014
     Dates: start: 20151216
  9. DEXTROSE. [Suspect]
     Active Substance: DEXTROSE
     Dosage: UNK
     Route: 014
     Dates: start: 20160627
  10. LIDOCAINE HCL [Suspect]
     Active Substance: LIDOCAINE HYDROCHLORIDE
     Dosage: UNK
     Route: 014
     Dates: start: 20160113
  11. DEXTROSE. [Suspect]
     Active Substance: DEXTROSE
     Dosage: UNK
     Route: 014
     Dates: start: 20160113
  12. DEXTROSE. [Suspect]
     Active Substance: DEXTROSE
     Dosage: UNK
     Route: 014
     Dates: start: 20160419
  13. LIDOCAINE HCL [Suspect]
     Active Substance: LIDOCAINE HYDROCHLORIDE
     Dosage: UNK
     Route: 014
     Dates: start: 20151216
  14. SIMVASTATIN. [Concomitant]
     Active Substance: SIMVASTATIN
     Indication: HYPERCHOLESTEROLAEMIA
     Dosage: 40 MG, 1X/DAY IN EVENING
  15. DEXTROSE. [Suspect]
     Active Substance: DEXTROSE
     Dosage: UNK
     Route: 014
     Dates: start: 20160808
  16. NORCO [Concomitant]
     Active Substance: ACETAMINOPHEN\HYDROCODONE BITARTRATE
     Indication: MUSCULOSKELETAL PAIN
  17. DEXTROSE. [Suspect]
     Active Substance: DEXTROSE
     Dosage: 50 %, UNK
     Route: 014
     Dates: start: 20150824
  18. DEXTROSE. [Suspect]
     Active Substance: DEXTROSE
     Dosage: UNK
     Route: 014
     Dates: start: 20160223
  19. LIDOCAINE HCL [Suspect]
     Active Substance: LIDOCAINE HYDROCHLORIDE
     Dosage: UNK
     Route: 014
     Dates: start: 20150924
  20. NORCO [Concomitant]
     Active Substance: ACETAMINOPHEN\HYDROCODONE BITARTRATE
     Indication: ARTHRALGIA
     Dosage: 10-325MG

REACTIONS (4)
  - Injection site pain [Unknown]
  - Condition aggravated [Unknown]
  - Pain [Unknown]
  - Product use in unapproved indication [Unknown]

NARRATIVE: CASE EVENT DATE: 20160808
